FAERS Safety Report 7591184-5 (Version None)
Quarter: 2011Q3

REPORT INFORMATION
  Report Type: 
  Country: None (occurrence: None)
  Receive Date: 20110705
  Receipt Date: 20110623
  Transmission Date: 20111222
  Serious: Yes (Hospitalization, Other)
  Sender: FDA-Public Use
  Company Number: US-ASTRAZENECA-2010SE24201

PATIENT
  Age: 65 Year
  Sex: Male
  Weight: 76.2 kg

DRUGS (10)
  1. PLAVIX [Concomitant]
  2. PRILOSEC OTC [Suspect]
     Indication: DYSPEPSIA
     Dosage: 20 MG 1 TO 2 TABLETS DAILY
     Route: 048
     Dates: start: 20081201
  3. FLUOXETINE HYDROCHLORIDE [Concomitant]
  4. LORATADINE [Concomitant]
     Indication: MULTIPLE ALLERGIES
  5. METOPROLOL TARTRATE [Suspect]
     Route: 048
  6. AMBIEN [Concomitant]
     Indication: SLEEP DISORDER
  7. NEXIUM [Suspect]
     Route: 048
  8. SIMVASTATIN [Concomitant]
  9. ASPIRIN [Concomitant]
  10. LORATADINE [Concomitant]
     Indication: SINUSITIS

REACTIONS (45)
  - VASCULAR GRAFT [None]
  - BENIGN NEOPLASM OF PROSTATE [None]
  - TOOTH EXTRACTION [None]
  - PANIC ATTACK [None]
  - TOBACCO ABUSE [None]
  - ARTHRALGIA [None]
  - PARAESTHESIA [None]
  - RHINITIS SEASONAL [None]
  - ANXIETY DISORDER [None]
  - MUSCLE SPASMS [None]
  - RADIOTHERAPY TO THROAT [None]
  - DRUG DOSE OMISSION [None]
  - PHARYNGITIS [None]
  - CONTUSION [None]
  - DYSPHAGIA [None]
  - CERUMEN IMPACTION [None]
  - PRURITUS [None]
  - JOINT STIFFNESS [None]
  - ARTERIOSCLEROSIS CORONARY ARTERY [None]
  - OESOPHAGEAL STENT INSERTION [None]
  - ORGANIC ERECTILE DYSFUNCTION [None]
  - VASCULAR STENT INSERTION [None]
  - GASTROOESOPHAGEAL REFLUX DISEASE [None]
  - SEBORRHOEIC KERATOSIS [None]
  - PSORIASIS [None]
  - CAROTID ARTERY STENOSIS [None]
  - THROAT CANCER [None]
  - FALL [None]
  - ESSENTIAL HYPERTENSION [None]
  - BACK PAIN [None]
  - INCISIONAL DRAINAGE [None]
  - WEIGHT DECREASED [None]
  - PERIPHERAL VASCULAR DISORDER [None]
  - THROMBOEMBOLECTOMY [None]
  - HIATUS HERNIA [None]
  - DYSPEPSIA [None]
  - MELANOCYTIC NAEVUS [None]
  - DERMAL CYST [None]
  - INTERMITTENT CLAUDICATION [None]
  - COUGH [None]
  - FATIGUE [None]
  - DEPRESSION [None]
  - DIZZINESS [None]
  - RASH [None]
  - DRUG INEFFECTIVE [None]
